FAERS Safety Report 23979580 (Version 1)
Quarter: 2024Q2

REPORT INFORMATION
  Report Type: Report from Study
  Country: EG (occurrence: EG)
  Receive Date: 20240616
  Receipt Date: 20240616
  Transmission Date: 20240716
  Serious: Yes (Other)
  Sender: FDA-Public Use
  Company Number: EG-SANDOZ-SDZ2024EG044185

PATIENT
  Age: 10 Year
  Sex: Female
  Weight: 50 kg

DRUGS (3)
  1. OMNITROPE [Suspect]
     Active Substance: SOMATROPIN
     Indication: Growth hormone deficiency
     Dosage: UNK, START DATE: 07-FEB-2023
     Route: 058
  2. OMNITROPE [Suspect]
     Active Substance: SOMATROPIN
     Dosage: 1.5 MG, QD, START DATE: JAN-202320 IU PER DAY USING INSULIN SYRINGE (ONGOING REGIMEN)
     Route: 058
  3. VIDROP [Concomitant]
     Indication: Vitamin D deficiency
     Dosage: UNK, ONE BOTTLE ONCE EVERY WEEK FOR 3 MONTHS THEN STOPPED AND STARTED WITH 10 DROPS ONCE PER DAY (ON
     Route: 048
     Dates: start: 202312

REACTIONS (10)
  - Crying [Recovered/Resolved]
  - Anger [Recovered/Resolved]
  - Mental disorder [Not Recovered/Not Resolved]
  - Pain [Recovered/Resolved]
  - Growth retardation [Unknown]
  - Product availability issue [Unknown]
  - Treatment noncompliance [Unknown]
  - Vitamin D deficiency [Unknown]
  - Device issue [Unknown]
  - Drug administered in wrong device [Recovered/Resolved]

NARRATIVE: CASE EVENT DATE: 20230101
